FAERS Safety Report 9519637 (Version 1)
Quarter: 2013Q3

REPORT INFORMATION
  Report Type: Spontaneous
  Country: US (occurrence: None)
  Receive Date: 20130911
  Receipt Date: 20130911
  Transmission Date: 20140515
  Serious: No
  Sender: FDA-Public Use
  Company Number: None

PATIENT
  Sex: Female

DRUGS (3)
  1. GABITRIL [Suspect]
     Indication: EPILEPSY
     Dates: start: 1996, end: 2007
  2. KEPPRA [Suspect]
     Indication: EPILEPSY
  3. TRILEPTAL [Concomitant]

REACTIONS (1)
  - Suicidal ideation [None]
